FAERS Safety Report 11190463 (Version 1)
Quarter: 2015Q2

REPORT INFORMATION
  Report Type: Report from Study
  Country: US (occurrence: None)
  Receive Date: 20150603
  Receipt Date: 20150603
  Transmission Date: 20150821
  Serious: No
  Sender: FDA-Public Use
  Company Number: 2015TASUS000769

PATIENT
  Age: 75 Year
  Sex: Female
  Weight: 61.2 kg

DRUGS (3)
  1. OXYBUTYNIN (OXYBUTYNIN HYDROCHLORIDE) [Concomitant]
  2. VITAMINS [Concomitant]
     Active Substance: VITAMINS
  3. HETLIOZ [Suspect]
     Active Substance: TASIMELTEON
     Indication: SLEEP DISORDER
     Dosage: 20 MG, QD, ORAL
     Route: 048
     Dates: start: 20141217

REACTIONS (3)
  - Fatigue [None]
  - Drug effect decreased [None]
  - Middle insomnia [None]
